FAERS Safety Report 10875237 (Version 5)
Quarter: 2016Q2

REPORT INFORMATION
  Report Type: Spontaneous
  Country: US (occurrence: US)
  Receive Date: 20150227
  Receipt Date: 20160408
  Transmission Date: 20160815
  Serious: Yes (Hospitalization, Disabling, Other)
  Sender: FDA-Public Use
  Company Number: US-009507513-1008USA04175

PATIENT
  Sex: Male
  Weight: 82.54 kg

DRUGS (3)
  1. FOSAMAX [Suspect]
     Active Substance: ALENDRONATE SODIUM
     Indication: OSTEOPOROSIS
     Dosage: 70 MG, QW
     Route: 048
     Dates: start: 20000302, end: 20070413
  2. ALENDRONATE SODIUM. [Suspect]
     Active Substance: ALENDRONATE SODIUM
     Indication: OSTEOPOROSIS
     Dosage: 70 MG, QW
     Route: 048
     Dates: start: 20050826, end: 201203
  3. ALENDRONATE SODIUM. [Suspect]
     Active Substance: ALENDRONATE SODIUM
     Indication: OSTEOPOROSIS
     Dosage: 70 MG, QW
     Route: 048
     Dates: start: 20050826, end: 201203

REACTIONS (69)
  - Fibula fracture [Unknown]
  - Angina unstable [Unknown]
  - Cellulitis [Unknown]
  - Contusion [Unknown]
  - Blood cholesterol increased [Unknown]
  - Rheumatoid arthritis [Unknown]
  - Acute kidney injury [Unknown]
  - Intervertebral disc displacement [Unknown]
  - Pleural effusion [Unknown]
  - Hyponatraemia [Unknown]
  - Liver transplant [Unknown]
  - Gait disturbance [Unknown]
  - Benign prostatic hyperplasia [Unknown]
  - Prostatitis [Unknown]
  - Paraspinal abscess [Unknown]
  - Renal failure [Unknown]
  - Humerus fracture [Unknown]
  - Hand fracture [Unknown]
  - Dyspnoea [Unknown]
  - Osteopenia [Unknown]
  - Pruritus [Unknown]
  - Swollen tongue [Unknown]
  - Dizziness [Unknown]
  - Psoas abscess [Unknown]
  - Anal incontinence [Unknown]
  - Femur fracture [Unknown]
  - Bone abscess [Unknown]
  - Pneumonia [Unknown]
  - Pericardial effusion [Unknown]
  - Renal disorder [Unknown]
  - Localised infection [Unknown]
  - Tibia fracture [Unknown]
  - Syncope [Unknown]
  - Humerus fracture [Unknown]
  - Coronary artery disease [Unknown]
  - Skin abrasion [Unknown]
  - Pain in extremity [Unknown]
  - Gastrooesophageal reflux disease [Unknown]
  - Peritonitis bacterial [Unknown]
  - Spinal compression fracture [Unknown]
  - Fall [Unknown]
  - Fatigue [Unknown]
  - Nausea [Unknown]
  - Impaired healing [Unknown]
  - Malnutrition [Unknown]
  - Urinary incontinence [Unknown]
  - Back pain [Unknown]
  - Cardiac failure congestive [Not Recovered/Not Resolved]
  - Atrial fibrillation [Unknown]
  - Pulmonary oedema [Recovered/Resolved]
  - Cholecystectomy [Unknown]
  - Haemangioma of liver [Unknown]
  - Peripheral vascular disorder [Unknown]
  - Cough [Unknown]
  - Spinal compression fracture [Unknown]
  - Osteomyelitis [Unknown]
  - Hepatic failure [Unknown]
  - Cardiac failure congestive [Recovering/Resolving]
  - Fall [Unknown]
  - Fall [Unknown]
  - Wrist fracture [Unknown]
  - Osteoarthritis [Not Recovered/Not Resolved]
  - Coccidioidomycosis [Unknown]
  - Nocturia [Unknown]
  - Visual impairment [Unknown]
  - Osteoarthritis [Unknown]
  - Coccidioidomycosis [Unknown]
  - Depression [Unknown]
  - Myocardial infarction [Unknown]

NARRATIVE: CASE EVENT DATE: 20010426
